FAERS Safety Report 10245545 (Version 1)
Quarter: 2014Q2

REPORT INFORMATION
  Report Type: Spontaneous
  Country: US (occurrence: US)
  Receive Date: 20140619
  Receipt Date: 20140619
  Transmission Date: 20141212
  Serious: Yes (Other)
  Sender: FDA-Public Use
  Company Number: US-AMGEN-USASP2014044158

PATIENT
  Age: 46 Year
  Sex: Female

DRUGS (1)
  1. XGEVA [Suspect]
     Indication: METASTASES TO BONE
     Route: 065

REACTIONS (2)
  - Metastases to bone [Unknown]
  - Endocrine disorder [Unknown]
